FAERS Safety Report 10019053 (Version 1)
Quarter: 2014Q1

REPORT INFORMATION
  Report Type: Spontaneous
  Country: PT (occurrence: PT)
  Receive Date: 20140318
  Receipt Date: 20140318
  Transmission Date: 20141002
  Serious: Yes (Other)
  Sender: FDA-Public Use
  Company Number: PT-JNJFOC-20140309766

PATIENT
  Age: 56 Year
  Sex: Female

DRUGS (8)
  1. ZALDIAR [Suspect]
     Indication: CERVICOBRACHIAL SYNDROME
     Route: 048
     Dates: start: 201110
  2. METANOR [Suspect]
     Indication: CERVICOBRACHIAL SYNDROME
     Route: 048
     Dates: start: 201110
  3. GABAPENTIN [Suspect]
     Indication: CERVICOBRACHIAL SYNDROME
     Route: 048
     Dates: start: 201109
  4. CIPRALEX [Concomitant]
     Indication: CERVICOBRACHIAL SYNDROME
     Route: 048
  5. TRITICUM [Concomitant]
     Indication: PRODUCT USED FOR UNKNOWN INDICATION
     Route: 048
  6. MORFEX [Concomitant]
     Indication: PRODUCT USED FOR UNKNOWN INDICATION
     Route: 048
  7. XANAX [Concomitant]
     Indication: PRODUCT USED FOR UNKNOWN INDICATION
     Route: 048
  8. OLMETEC PLUS [Concomitant]
     Indication: HYPERTENSION
     Route: 048

REACTIONS (2)
  - Rash pruritic [Recovered/Resolved]
  - Rash generalised [Recovered/Resolved]
